FAERS Safety Report 5712475-6 (Version None)
Quarter: 2008Q2

REPORT INFORMATION
  Report Type: 
  Country: None (occurrence: None)
  Receive Date: 20080422
  Receipt Date: 20080413
  Transmission Date: 20081010
  Serious: Yes (Other)
  Sender: FDA-Public Use
  Company Number: IE-BAYER-200810985BNE

PATIENT
  Sex: Female

DRUGS (1)
  1. CIPROFLOXACIN HCL [Suspect]
     Indication: URINARY TRACT INFECTION
     Dosage: UNIT DOSE: 250 MG
     Route: 048

REACTIONS (2)
  - SUDDEN ONSET OF SLEEP [None]
  - UNEVALUABLE EVENT [None]
